FAERS Safety Report 23409279 (Version 1)
Quarter: 2024Q1

REPORT INFORMATION
  Report Type: Spontaneous
  Country: US (occurrence: None)
  Receive Date: 20240116
  Receipt Date: 20240116
  Transmission Date: 20240410
  Serious: No
  Sender: FDA-Public Use
  Company Number: None

PATIENT
  Age: 54 Year
  Sex: Female

DRUGS (1)
  1. AMBRISENTAN [Suspect]
     Active Substance: AMBRISENTAN
     Indication: Pulmonary hypertension
     Dosage: FREQUENCY : DAILY;?
     Route: 048
     Dates: start: 20200519

REACTIONS (6)
  - Sinus congestion [None]
  - Oropharyngeal pain [None]
  - Body temperature increased [None]
  - Fatigue [None]
  - Feeling abnormal [None]
  - Dysphonia [None]

NARRATIVE: CASE EVENT DATE: 20240109
